FAERS Safety Report 6768731-6 (Version None)
Quarter: 2010Q2

REPORT INFORMATION
  Report Type: 
  Country: None (occurrence: None)
  Receive Date: 20100614
  Receipt Date: 20090914
  Transmission Date: 20101027
  Serious: Yes (Congenital Anomaly)
  Sender: FDA-Public Use
  Company Number: -SAAVPROD-200913397FR

PATIENT
  Sex: Male

DRUGS (4)
  1. ACETAMINOPHEN WITH PROPOXYPHENE HCL TAB [Suspect]
     Dosage: DOSE UNIT: 430 MG
     Route: 064
     Dates: start: 20080501
  2. CLOMIPHENE CITRATE [Suspect]
     Indication: OVULATION INDUCTION
     Dosage: DOSE UNIT: 50 MG
     Route: 064
     Dates: start: 20080101
  3. TETRAZEPAM [Suspect]
     Dosage: DOSE UNIT: 50 MG
     Route: 064
     Dates: start: 20080501
  4. NO MENTION OF FURTHER MEDICATION [Concomitant]

REACTIONS (4)
  - DRUG EXPOSURE DURING PREGNANCY [None]
  - HEART DISEASE CONGENITAL [None]
  - OESOPHAGEAL ATRESIA [None]
  - TRACHEAL FISTULA [None]
